FAERS Safety Report 4538220-8 (Version None)
Quarter: 2004Q4

REPORT INFORMATION
  Report Type: 
  Country: None (occurrence: None)
  Receive Date: 20041227
  Receipt Date: 20041214
  Transmission Date: 20050328
  Serious: Yes (Hospitalization, Other)
  Sender: FDA-Public Use
  Company Number: DE-JNJFOC-20041008507

PATIENT
  Age: 34 Year
  Sex: Male
  Weight: 88.4 kg

DRUGS (1)
  1. REMICADE [Suspect]
     Indication: CROHN'S DISEASE
     Dosage: REMICADE HAS BEEN GIVEN FOR 2 YEARS.
     Route: 042

REACTIONS (2)
  - CARDIAC FAILURE [None]
  - COR PULMONALE [None]
